FAERS Safety Report 16738978 (Version 2)
Quarter: 2019Q4

REPORT INFORMATION
  Report Type: Spontaneous
  Country: US (occurrence: US)
  Receive Date: 20190826
  Receipt Date: 20191106
  Transmission Date: 20200122
  Serious: Yes (Other)
  Sender: FDA-Public Use
  Company Number: US-HETERO-HET2019US01150

PATIENT
  Sex: Female

DRUGS (2)
  1. LOSARTAN. [Suspect]
     Active Substance: LOSARTAN
     Dosage: 100 MG
     Route: 065
  2. LOSARTAN. [Suspect]
     Active Substance: LOSARTAN
     Indication: HYPOTENSION
     Dosage: 50 MG
     Route: 065

REACTIONS (17)
  - Fatigue [Unknown]
  - Blood pressure increased [Unknown]
  - Skin discolouration [Unknown]
  - Myalgia [Unknown]
  - Somnolence [Unknown]
  - Peripheral swelling [Unknown]
  - Dizziness [Unknown]
  - Burning sensation [Unknown]
  - Sleep disorder [Unknown]
  - Muscle spasms [Unknown]
  - Confusional state [Unknown]
  - Mood altered [Unknown]
  - Back pain [Unknown]
  - Product use in unapproved indication [Unknown]
  - Heart rate increased [Unknown]
  - Headache [Unknown]
  - Pain [Unknown]
